FAERS Safety Report 8827426 (Version 1)
Quarter: 2012Q4

REPORT INFORMATION
  Report Type: 
  Country: US (occurrence: US)
  Receive Date: 20121005
  Receipt Date: 20121005
  Transmission Date: 20130627
  Serious: No
  Sender: FDA-Public Use
  Company Number: US-BRISTOL-MYERS SQUIBB COMPANY-16562944

PATIENT
  Age: 70 Year
  Sex: Female

DRUGS (4)
  1. AVAPRO [Suspect]
  2. XANAX [Concomitant]
  3. INDERAL [Concomitant]
  4. VERAPAMIL [Concomitant]

REACTIONS (2)
  - Nervousness [Unknown]
  - Palpitations [Unknown]
